FAERS Safety Report 6856085-6 (Version None)
Quarter: 2010Q3

REPORT INFORMATION
  Report Type: 
  Country: None (occurrence: None)
  Receive Date: 20100715
  Receipt Date: 20100715
  Transmission Date: 20110219
  Serious: Yes (Hospitalization)
  Sender: FDA-Public Use
  Company Number: None

PATIENT
  Age: 33 Year
  Sex: Male
  Weight: 129.2752 kg

DRUGS (1)
  1. ABILIFY [Suspect]
     Indication: BIPOLAR DISORDER
     Dosage: 10 MG ONCE AT BEDTIME PO
     Route: 048
     Dates: start: 20050315, end: 20100714

REACTIONS (2)
  - DELUSION [None]
  - TREMOR [None]
